FAERS Safety Report 10571695 (Version 2)
Quarter: 2014Q4

REPORT INFORMATION
  Report Type: Spontaneous
  Country: JP (occurrence: JP)
  Receive Date: 20141107
  Receipt Date: 20141216
  Transmission Date: 20150529
  Serious: Yes (Other)
  Sender: FDA-Public Use
  Company Number: JP-GLAXOSMITHKLINE-JP2014JPN016784

PATIENT
  Age: 55 Year
  Sex: Male

DRUGS (3)
  1. ARRANON [Suspect]
     Active Substance: NELARABINE
     Dosage: UNK
     Dates: start: 20121219
  2. ARRANON [Suspect]
     Active Substance: NELARABINE
     Dosage: 1500 MG/M2, QOD
     Route: 042
     Dates: start: 20120828, end: 20120901
  3. ARRANON [Suspect]
     Active Substance: NELARABINE
     Indication: T-CELL TYPE ACUTE LEUKAEMIA
     Dosage: 1500 MG/M2, QOD
     Route: 042
     Dates: start: 20120807, end: 20120811

REACTIONS (6)
  - Gait disturbance [Recovering/Resolving]
  - Cytopenia [Recovering/Resolving]
  - Somnolence [Recovering/Resolving]
  - Liver disorder [Recovering/Resolving]
  - Somnolence [Recovering/Resolving]
  - Hypoaesthesia [Recovering/Resolving]

NARRATIVE: CASE EVENT DATE: 201208
